FAERS Safety Report 5922996-9 (Version None)
Quarter: 2008Q4

REPORT INFORMATION
  Report Type: 
  Country: None (occurrence: None)
  Receive Date: 20081018
  Receipt Date: 20081006
  Transmission Date: 20090506
  Serious: Yes (Other)
  Sender: FDA-Public Use
  Company Number: FR-PFIZER INC-2008084248

PATIENT

DRUGS (2)
  1. RELPAX [Suspect]
  2. BI-PROFENID [Interacting]

REACTIONS (2)
  - DRUG INTERACTION [None]
  - OPTIC NEURITIS [None]
